FAERS Safety Report 23084536 (Version 2)
Quarter: 2023Q4

REPORT INFORMATION
  Report Type: Spontaneous
  Country: CA (occurrence: CA)
  Receive Date: 20231019
  Receipt Date: 20231027
  Transmission Date: 20240110
  Serious: Yes (Other)
  Sender: FDA-Public Use
  Company Number: CA-SANDOZ-SDZ2023CA043762

PATIENT
  Age: 80 Year
  Sex: Male

DRUGS (12)
  1. ACYCLOVIR [Suspect]
     Active Substance: ACYCLOVIR
     Indication: Herpes simplex
     Dosage: UNK
     Route: 065
  2. FAMCICLOVIR [Suspect]
     Active Substance: FAMCICLOVIR
     Indication: Herpes simplex
     Dosage: 500 MG, BID
     Route: 048
  3. FAMCICLOVIR [Suspect]
     Active Substance: FAMCICLOVIR
     Dosage: UNK
     Route: 048
  4. VALACYCLOVIR HYDROCHLORIDE [Suspect]
     Active Substance: VALACYCLOVIR HYDROCHLORIDE
     Indication: Product used for unknown indication
     Dosage: 1.0 G, TID
     Route: 048
  5. VALACYCLOVIR HYDROCHLORIDE [Suspect]
     Active Substance: VALACYCLOVIR HYDROCHLORIDE
     Indication: Herpes simplex
     Dosage: UNK
     Route: 048
  6. VALACYCLOVIR HYDROCHLORIDE [Suspect]
     Active Substance: VALACYCLOVIR HYDROCHLORIDE
     Dosage: UNK
     Route: 048
  7. FOSCARNET SODIUM [Concomitant]
     Active Substance: FOSCARNET SODIUM
     Indication: Herpes simplex
     Dosage: 90 MG/KG, QD
     Route: 042
  8. IMIQUIMOD [Concomitant]
     Active Substance: IMIQUIMOD
     Indication: Herpes simplex
     Route: 061
  9. METFORMIN [Concomitant]
     Active Substance: METFORMIN HYDROCHLORIDE
     Indication: Type 2 diabetes mellitus
     Dosage: UNK
     Route: 065
  10. RABEPRAZOLE [Concomitant]
     Active Substance: RABEPRAZOLE
     Indication: Product used for unknown indication
     Dosage: UNK
     Route: 065
  11. RUXOLITINIB [Concomitant]
     Active Substance: RUXOLITINIB
     Indication: Myelofibrosis
     Dosage: UNK
     Route: 065
  12. SIMVASTATIN [Concomitant]
     Active Substance: SIMVASTATIN
     Indication: Dyslipidaemia
     Dosage: UNK
     Route: 065

REACTIONS (4)
  - Condition aggravated [Recovered/Resolved]
  - Pathogen resistance [Recovered/Resolved]
  - Drug resistance [Unknown]
  - Drug ineffective [Recovered/Resolved]
